FAERS Safety Report 18972289 (Version 1)
Quarter: 2021Q1

REPORT INFORMATION
  Report Type: Spontaneous
  Country: US (occurrence: US)
  Receive Date: 20210305
  Receipt Date: 20210305
  Transmission Date: 20210420
  Serious: No
  Sender: FDA-Public Use
  Company Number: US-STRIDES ARCOLAB LIMITED-2021SP001045

PATIENT
  Age: 32 Year
  Sex: Female

DRUGS (2)
  1. BACITRACIN. [Concomitant]
     Active Substance: BACITRACIN
     Indication: INCISION SITE PAIN
     Dosage: UNK
     Route: 061
  2. TRIAMCINOLONE ACETONIDE. [Suspect]
     Active Substance: TRIAMCINOLONE ACETONIDE
     Indication: DERMATITIS CONTACT
     Dosage: UNK
     Route: 061

REACTIONS (2)
  - Perioral dermatitis [Not Recovered/Not Resolved]
  - Off label use [Unknown]
